FAERS Safety Report 6631623-7 (Version None)
Quarter: 2010Q1

REPORT INFORMATION
  Report Type: 
  Country: None (occurrence: None)
  Receive Date: 20100312
  Receipt Date: 20100301
  Transmission Date: 20100710
  Serious: Yes (Life-Threatening)
  Sender: FDA-Public Use
  Company Number: JP-PFIZER INC-2010027111

PATIENT
  Age: 77 Year
  Sex: Male

DRUGS (1)
  1. HALCION [Suspect]
     Indication: RESTLESSNESS
     Dosage: 0.25 MG
     Route: 048
     Dates: start: 20100225, end: 20100225

REACTIONS (2)
  - CARDIO-RESPIRATORY ARREST [None]
  - RESPIRATORY DEPRESSION [None]
